FAERS Safety Report 8073035-8 (Version None)
Quarter: 2012Q1

REPORT INFORMATION
  Report Type: 
  Country: None (occurrence: None)
  Receive Date: 20120126
  Receipt Date: 20120118
  Transmission Date: 20120608
  Serious: Yes (Death)
  Sender: FDA-Public Use
  Company Number: JP-BAXTER-2012BH002138

PATIENT
  Age: 63 Year
  Sex: Male

DRUGS (6)
  1. TACROLIMUS [Concomitant]
     Indication: IMMUNOSUPPRESSION
     Route: 065
  2. NEUPOGEN [Concomitant]
     Indication: PANCYTOPENIA
     Route: 065
  3. IMMUNE GLOBULIN INTRAVENOUS (HUMAN) [Suspect]
     Indication: HISTIOCYTOSIS HAEMATOPHAGIC
     Route: 042
  4. HEPATITIS B IMMUNE GLOBULIN (HUMAN) [Concomitant]
     Indication: HEPATITIS B
     Route: 042
  5. IMMUNE GLOBULIN INTRAVENOUS (HUMAN) [Suspect]
     Indication: OFF LABEL USE
     Route: 042
  6. METHYLPREDNISOLONE [Suspect]
     Indication: HISTIOCYTOSIS HAEMATOPHAGIC
     Route: 065

REACTIONS (3)
  - RENAL FAILURE [None]
  - DRUG INEFFECTIVE [None]
  - HAEMODYNAMIC INSTABILITY [None]
